FAERS Safety Report 6043315-6 (Version None)
Quarter: 2009Q1

REPORT INFORMATION
  Report Type: 
  Country: None (occurrence: None)
  Receive Date: 20090115
  Receipt Date: 20090106
  Transmission Date: 20090719
  Serious: Yes (Other)
  Sender: FDA-Public Use
  Company Number: CHPA2009US00496

PATIENT
  Age: 46 Year
  Sex: Female
  Weight: 50.3 kg

DRUGS (5)
  1. TRIAMINIC COLD AND ALLERGY (NCH) (CHLORPHENAMINE MALEATE, PHENYLEPHRIN [Suspect]
     Indication: COUGH
     Dosage: ORAL
     Route: 048
  2. TRIAMINIC COLD AND ALLERGY (NCH) (CHLORPHENAMINE MALEATE, PHENYLEPHRIN [Suspect]
     Indication: NASOPHARYNGITIS
     Dosage: ORAL
     Route: 048
  3. TRIAMINIC SRT [Suspect]
     Indication: COUGH
     Dosage: ORAL
     Route: 048
  4. TRIAMINIC SRT [Suspect]
     Indication: NASOPHARYNGITIS
     Dosage: ORAL
     Route: 048
  5. ALKA-SELTZER /USA/ (ACETYLSALICYLIC ACID, CITRIC ACID, SODIUM BICARBON [Concomitant]

REACTIONS (2)
  - INTRACRANIAL ANEURYSM [None]
  - MIGRAINE [None]
